FAERS Safety Report 5750018-1 (Version None)
Quarter: 2008Q2

REPORT INFORMATION
  Report Type: 
  Country: None (occurrence: None)
  Receive Date: 20080527
  Receipt Date: 20080519
  Transmission Date: 20081010
  Serious: Yes (Life-Threatening, Hospitalization, Disabling)
  Sender: FDA-Public Use
  Company Number: GB-BOEHRINGER INGELHEIM GMBH, GERMANY-2008-UK-01191UK

PATIENT

DRUGS (3)
  1. VIRAMUNE [Suspect]
     Indication: HIV INFECTION
  2. LAMIVUDINE [Suspect]
     Indication: EXPOSURE TO COMMUNICABLE DISEASE
  3. ZIDOVUDINE [Suspect]
     Indication: EXPOSURE TO COMMUNICABLE DISEASE

REACTIONS (1)
  - PREMATURE BABY [None]
